FAERS Safety Report 8379257-0 (Version None)
Quarter: 2012Q1

REPORT INFORMATION
  Report Type: 
  Country: None (occurrence: None)
  Receive Date: 20120323
  Receipt Date: 20110317
  Transmission Date: 20120608
  Serious: Yes (Other)
  Sender: FDA-Public Use
  Company Number: 163-21880-11032238

PATIENT
  Sex: Female
  Weight: 36.2878 kg

DRUGS (1)
  1. REVLIMID [Suspect]
     Indication: MULTIPLE MYELOMA
     Dosage: 10 MG, DAILY FOR 3 WEEKS ON 1 WEEK OFF, PO
     Route: 048
     Dates: start: 20100503

REACTIONS (2)
  - UNDERWEIGHT [None]
  - ASTHENIA [None]
